FAERS Safety Report 5326782-2 (Version None)
Quarter: 2007Q2

REPORT INFORMATION
  Report Type: 
  Country: None (occurrence: None)
  Receive Date: 20070516
  Receipt Date: 20070502
  Transmission Date: 20071010
  Serious: Yes (Hospitalization)
  Sender: FDA-Public Use
  Company Number: US-AMGEN-US195216

PATIENT
  Sex: Female

DRUGS (1)
  1. ENBREL [Suspect]
     Indication: RHEUMATOID ARTHRITIS
     Route: 058
     Dates: start: 19980801

REACTIONS (7)
  - BLADDER CANCER [None]
  - CATARACT [None]
  - DEHYDRATION [None]
  - INJECTION SITE IRRITATION [None]
  - PNEUMONIA [None]
  - RHEUMATOID ARTHRITIS [None]
  - VIRAL DIARRHOEA [None]
